FAERS Safety Report 6191688-6 (Version None)
Quarter: 2009Q2

REPORT INFORMATION
  Report Type: 
  Country: None (occurrence: None)
  Receive Date: 20090515
  Receipt Date: 20090514
  Transmission Date: 20091009
  Serious: Yes (Death, Other)
  Sender: FDA-Public Use
  Company Number: PHHY2009GB11955

PATIENT
  Sex: Female

DRUGS (14)
  1. CLOZARIL [Suspect]
     Indication: SCHIZOPHRENIA
     Dosage: UNK
     Route: 048
     Dates: start: 19960212
  2. CLOZARIL [Suspect]
     Dosage: 150 MG NOCTE
  3. AMISULPRIDE [Concomitant]
     Indication: SCHIZOPHRENIA
     Dosage: 400 MG, TID
     Route: 048
  4. HALOPERIDOL [Concomitant]
     Indication: SCHIZOPHRENIA
     Dosage: 2.5 MG, PRN
  5. PIRENZEPINE [Concomitant]
     Indication: SALIVARY HYPERSECRETION
     Dosage: 50 MG DAILY
  6. NULYTELY [Concomitant]
     Dosage: DAILY
     Route: 048
  7. LACTULOSE [Concomitant]
     Dosage: 15 ML
     Route: 048
  8. ASPIRIN [Concomitant]
     Dosage: 75 MG DAILY
     Route: 048
  9. PROPRANOLOL [Concomitant]
     Dosage: 40 MG, BID
     Route: 048
  10. OMEPRAZOLE [Concomitant]
     Dosage: 20 MG DAILY
     Route: 048
  11. FERROUS SULFATE TAB [Concomitant]
     Dosage: 200 MG DAILY
     Route: 048
  12. FLUVASTATIN [Concomitant]
     Dosage: 40 MG NOCTE
     Route: 048
  13. CARBOCISTEINE [Concomitant]
     Dosage: 375 MG, TID
     Route: 048
  14. SENNA [Concomitant]
     Dosage: 7.5 MG NOCTE
     Route: 048

REACTIONS (4)
  - BRAIN HYPOXIA [None]
  - BRAIN INJURY [None]
  - CARDIAC FAILURE CONGESTIVE [None]
  - IRON DEFICIENCY ANAEMIA [None]
